FAERS Safety Report 6289941-0 (Version None)
Quarter: 2009Q3

REPORT INFORMATION
  Report Type: 
  Country: None (occurrence: None)
  Receive Date: 20090730
  Receipt Date: 20080917
  Transmission Date: 20100115
  Serious: No
  Sender: FDA-Public Use
  Company Number: US-BRISTOL-MYERS SQUIBB COMPANY-14346126

PATIENT

DRUGS (2)
  1. COUMADIN [Suspect]
  2. NON-MEDICINAL PRODUCT [Suspect]

REACTIONS (2)
  - DRUG EFFECT DECREASED [None]
  - FOOD INTERACTION [None]
